FAERS Safety Report 14701021 (Version 1)
Quarter: 2018Q1

REPORT INFORMATION
  Report Type: Report from Study
  Country: US (occurrence: US)
  Receive Date: 20180330
  Receipt Date: 20180330
  Transmission Date: 20180509
  Serious: Yes (Hospitalization, Other)
  Sender: FDA-Public Use
  Company Number: US-JAZZ-2018-US-003748

PATIENT
  Sex: Male

DRUGS (23)
  1. SERTRALINE HCL [Concomitant]
     Active Substance: SERTRALINE HYDROCHLORIDE
  2. XYREM [Suspect]
     Active Substance: SODIUM OXYBATE
     Indication: NARCOLEPSY
     Dosage: 2.5 G, BID
     Route: 048
     Dates: start: 201106, end: 201107
  3. XYREM [Suspect]
     Active Substance: SODIUM OXYBATE
     Dosage: 2.25 G, BID
     Route: 048
     Dates: start: 201410, end: 2014
  4. ROSUVASTATIN CALCIUM. [Concomitant]
     Active Substance: ROSUVASTATIN CALCIUM
  5. PRAMIPEXOLE. [Concomitant]
     Active Substance: PRAMIPEXOLE
  6. MELOXICAM. [Concomitant]
     Active Substance: MELOXICAM
  7. LISINOPRIL. [Concomitant]
     Active Substance: LISINOPRIL
  8. RITALIN [Concomitant]
     Active Substance: METHYLPHENIDATE HYDROCHLORIDE
  9. METOPROLOL SUCCINATE. [Concomitant]
     Active Substance: METOPROLOL SUCCINATE
  10. METFORMIN HCL [Concomitant]
     Active Substance: METFORMIN HYDROCHLORIDE
  11. XYREM [Suspect]
     Active Substance: SODIUM OXYBATE
     Dosage: 4.5 G, BID
     Route: 048
     Dates: start: 2014, end: 2015
  12. PHENTERMINE. [Concomitant]
     Active Substance: PHENTERMINE
  13. OMEPRAZOLE. [Concomitant]
     Active Substance: OMEPRAZOLE
  14. XYREM [Suspect]
     Active Substance: SODIUM OXYBATE
     Indication: CATAPLEXY
     Dosage: DOSE ADJUSTMENTS
     Route: 048
     Dates: start: 201107, end: 201110
  15. LYRICA [Suspect]
     Active Substance: PREGABALIN
     Indication: PRODUCT USED FOR UNKNOWN INDICATION
     Dosage: UNK
     Dates: start: 20150616, end: 20180201
  16. GABAPENTIN. [Concomitant]
     Active Substance: GABAPENTIN
  17. VICTOZA [Concomitant]
     Active Substance: LIRAGLUTIDE
  18. ALLOPURINOL. [Concomitant]
     Active Substance: ALLOPURINOL
  19. BYETTA [Concomitant]
     Active Substance: EXENATIDE
  20. LOSARTAN/HCTZ [Concomitant]
     Active Substance: HYDROCHLOROTHIAZIDE\LOSARTAN
  21. XYREM [Suspect]
     Active Substance: SODIUM OXYBATE
     Dosage: 4.5 G, BID
     Route: 048
     Dates: start: 201110, end: 2012
  22. PANTOPRAZOLE SODIUM. [Concomitant]
     Active Substance: PANTOPRAZOLE SODIUM
  23. HUMIRA [Concomitant]
     Active Substance: ADALIMUMAB

REACTIONS (6)
  - Glycosylated haemoglobin increased [Unknown]
  - Weight increased [Unknown]
  - Neuropathy peripheral [Recovering/Resolving]
  - Drug ineffective [Unknown]
  - Hospitalisation [Unknown]
  - Myalgia [Unknown]
